FAERS Safety Report 7450546-7 (Version None)
Quarter: 2011Q2

REPORT INFORMATION
  Report Type: 
  Country: None (occurrence: None)
  Receive Date: 20110429
  Receipt Date: 20110429
  Transmission Date: 20111010
  Serious: Yes (Other)
  Sender: FDA-Public Use
  Company Number: None

PATIENT
  Sex: Female

DRUGS (1)
  1. RELPAX [Suspect]
     Indication: MIGRAINE
     Dosage: 1 @ ONSET OF HA PO
     Route: 048
     Dates: start: 20110411

REACTIONS (3)
  - OROPHARYNGEAL PAIN [None]
  - MYALGIA [None]
  - DYSPNOEA [None]
